FAERS Safety Report 8958234 (Version 3)
Quarter: 2015Q4

REPORT INFORMATION
  Report Type: Report from Study
  Country: IT (occurrence: IT)
  Receive Date: 20121211
  Receipt Date: 20151116
  Transmission Date: 20160305
  Serious: Yes (Hospitalization)
  Sender: FDA-Public Use
  Company Number: IT-ROCHE-1163221

PATIENT
  Age: 59 Year
  Sex: Female
  Weight: 69 kg

DRUGS (4)
  1. TRASTUZUMAB [Suspect]
     Active Substance: TRASTUZUMAB
     Dosage: MAINTAINENCE DOSE. LAST DOSE PRIOR TO SAE WAS ON 06/NOV/2012.
     Route: 042
  2. TRASTUZUMAB [Suspect]
     Active Substance: TRASTUZUMAB
     Indication: BREAST CANCER
     Dosage: LOADING DOSE
     Route: 042
     Dates: start: 20121015, end: 20121015
  3. PERTUZUMAB [Suspect]
     Active Substance: PERTUZUMAB
     Indication: BREAST CANCER
     Dosage: LAST DOSE PRIOR TO SAE WAS ON 06/NOV/2012.
     Route: 042
     Dates: start: 20121015
  4. PACLITAXEL. [Suspect]
     Active Substance: PACLITAXEL
     Indication: BREAST CANCER
     Dosage: 80 MG/MQ, LAST DOSE PRIOR TO SAE WAS ON 20/NOV/2012.
     Route: 042
     Dates: start: 20121015

REACTIONS (1)
  - Embolism [Recovered/Resolved]

NARRATIVE: CASE EVENT DATE: 20121128
